FAERS Safety Report 18259189 (Version 4)
Quarter: 2022Q4

REPORT INFORMATION
  Report Type: Report from Study
  Country: DK (occurrence: DK)
  Receive Date: 20200911
  Receipt Date: 20221110
  Transmission Date: 20230113
  Serious: Yes (Death, Life-Threatening, Hospitalization, Other)
  Sender: FDA-Public Use
  Company Number: DK-BRISTOL-MYERS SQUIBB COMPANY-BMS-2020-070117

PATIENT
  Age: 79 Year
  Sex: Male
  Weight: 99 kg

DRUGS (14)
  1. IPILIMUMAB [Suspect]
     Active Substance: IPILIMUMAB
     Indication: Colorectal cancer metastatic
     Route: 042
     Dates: start: 20200716, end: 20200716
  2. IPILIMUMAB [Suspect]
     Active Substance: IPILIMUMAB
     Route: 042
     Dates: start: 20200806, end: 20200806
  3. METOPROLOL [Concomitant]
     Active Substance: METOPROLOL
     Indication: Product used for unknown indication
     Dosage: 100 MILLIGRAM
     Route: 048
     Dates: start: 20190511, end: 20200907
  4. METOPROLOL [Concomitant]
     Active Substance: METOPROLOL
  5. SEMAGLUTIDE [Concomitant]
     Active Substance: SEMAGLUTIDE
     Indication: Product used for unknown indication
     Dosage: 9 MILLIGRAM
     Route: 048
     Dates: start: 20200820, end: 20200907
  6. NOVORAPID [Concomitant]
     Active Substance: INSULIN ASPART
     Indication: Product used for unknown indication
     Dosage: UNK
     Route: 058
     Dates: start: 20200826
  7. LOSARTAN [Concomitant]
     Active Substance: LOSARTAN
     Indication: Product used for unknown indication
     Dosage: 50 MILLIGRAM
     Route: 048
  8. ASPIRIN [Concomitant]
     Active Substance: ASPIRIN
     Indication: Product used for unknown indication
     Dosage: 75 MILLIGRAM
     Route: 048
     Dates: start: 20161228, end: 20200907
  9. BETOLVEX [CYANOCOBALAMIN ZINC TANNATE] [Concomitant]
     Indication: Product used for unknown indication
     Dosage: 1 MILLIGRAM
     Route: 048
     Dates: start: 20180531, end: 20200907
  10. LOSARTAN [Concomitant]
     Active Substance: LOSARTAN
     Indication: Product used for unknown indication
     Dosage: 50 MILLIGRAM
     Route: 048
     Dates: start: 20171207, end: 20200907
  11. METFORMIN [Concomitant]
     Active Substance: METFORMIN HYDROCHLORIDE
     Indication: Product used for unknown indication
     Dosage: 2000 MILLIGRAM
     Route: 048
     Dates: start: 20190510, end: 20200907
  12. ATORVASTATIN [Concomitant]
     Active Substance: ATORVASTATIN
     Indication: Product used for unknown indication
     Dosage: 20 MILLIGRAM
     Route: 048
     Dates: start: 20190511, end: 20200907
  13. SITAGLIPTIN [Concomitant]
     Active Substance: SITAGLIPTIN
     Indication: Product used for unknown indication
     Dosage: 100 MILLIGRAM
     Route: 048
     Dates: start: 20200520, end: 20200907
  14. ACETAMINOPHEN [Concomitant]
     Active Substance: ACETAMINOPHEN
     Indication: Product used for unknown indication
     Dosage: 4 GRAM
     Route: 048
     Dates: start: 20200319, end: 20200907

REACTIONS (2)
  - Myocarditis [Fatal]
  - Myasthenia gravis [Not Recovered/Not Resolved]

NARRATIVE: CASE EVENT DATE: 20200826
